FAERS Safety Report 24775535 (Version 1)
Quarter: 2024Q4

REPORT INFORMATION
  Report Type: Spontaneous
  Country: PT (occurrence: PT)
  Receive Date: 20241226
  Receipt Date: 20241226
  Transmission Date: 20250115
  Serious: Yes (Hospitalization, Other)
  Sender: SAMSUNG BIOEPIS
  Company Number: PT-SAMSUNG BIOEPIS-SB-2024-38934

PATIENT
  Age: 47 Year
  Sex: Female

DRUGS (1)
  1. INFLIXIMAB [Suspect]
     Active Substance: INFLIXIMAB
     Indication: Spondyloarthropathy

REACTIONS (6)
  - Fungal endocarditis [Unknown]
  - Pneumonia [Unknown]
  - Haematoma [Unknown]
  - Aspergillus infection [Unknown]
  - Cerebral artery embolism [Unknown]
  - Off label use [Unknown]
